FAERS Safety Report 24430600 (Version 1)
Quarter: 2024Q4

REPORT INFORMATION
  Report Type: Report from Study
  Country: ES (occurrence: ES)
  Receive Date: 20241013
  Receipt Date: 20241013
  Transmission Date: 20250115
  Serious: Yes (Other)
  Sender: JOHNSON AND JOHNSON
  Company Number: ES-JNJFOC-20240222609

PATIENT
  Age: 70 Year
  Sex: Male

DRUGS (3)
  1. DARATUMUMAB [Suspect]
     Active Substance: DARATUMUMAB
     Indication: Plasma cell myeloma
     Dosage: 15 (UNIT UNSPECIFIED)
     Route: 065
     Dates: start: 20240109
  2. DARATUMUMAB [Suspect]
     Active Substance: DARATUMUMAB
     Dosage: 15 (UNIT UNSPECIFIED)
     Route: 065
     Dates: start: 20240116, end: 20240116
  3. DARATUMUMAB [Suspect]
     Active Substance: DARATUMUMAB
     Dosage: 15 (UNIT UNSPECIFIED)
     Route: 065
     Dates: start: 20240109, end: 20240109

REACTIONS (2)
  - Citrobacter infection [Recovered/Resolved]
  - Neutropenia [Recovered/Resolved]

NARRATIVE: CASE EVENT DATE: 20240122
